FAERS Safety Report 5589711-2 (Version None)
Quarter: 2008Q1

REPORT INFORMATION
  Report Type: 
  Country: None (occurrence: None)
  Receive Date: 20080114
  Receipt Date: 20080107
  Transmission Date: 20080703
  Serious: Yes (Life-Threatening)
  Sender: FDA-Public Use
  Company Number: B0500827A

PATIENT
  Age: 75 Year
  Sex: Male

DRUGS (1)
  1. ARIXTRA [Suspect]
     Dosage: 2.5MG PER DAY
     Route: 058
     Dates: start: 20071002, end: 20071020

REACTIONS (3)
  - HAEMATOMA [None]
  - HAEMORRHAGIC ANAEMIA [None]
  - INCISION SITE HAEMORRHAGE [None]
